FAERS Safety Report 22915150 (Version 2)
Quarter: 2024Q1

REPORT INFORMATION
  Report Type: Spontaneous
  Country: US (occurrence: US)
  Receive Date: 20230907
  Receipt Date: 20240329
  Transmission Date: 20240410
  Serious: No
  Sender: FDA-Public Use
  Company Number: US-ABBVIE-5395777

PATIENT
  Sex: Female
  Weight: 41 kg

DRUGS (3)
  1. ALPHAGAN P [Suspect]
     Active Substance: BRIMONIDINE TARTRATE
     Indication: Open angle glaucoma
     Dosage: 1 DROP EACH EYE?1MG/ML SOLUTION
     Route: 047
     Dates: start: 20230527
  2. TIMOLOL [Concomitant]
     Active Substance: TIMOLOL
     Indication: Angle closure glaucoma
     Dosage: 1 DROP EACH EYE
  3. DORZOLAMIDE HYDROCHLORIDE [Concomitant]
     Active Substance: DORZOLAMIDE HYDROCHLORIDE
     Indication: Angle closure glaucoma
     Dosage: 1 DROP EACH EYE

REACTIONS (16)
  - Periorbital pain [Not Recovered/Not Resolved]
  - Decreased appetite [Not Recovered/Not Resolved]
  - Eye irritation [Recovering/Resolving]
  - Eyelid pain [Not Recovered/Not Resolved]
  - Vision blurred [Recovering/Resolving]
  - Weight decreased [Not Recovered/Not Resolved]
  - Agitation [Not Recovered/Not Resolved]
  - Dysphonia [Unknown]
  - Foreign body sensation in eyes [Not Recovered/Not Resolved]
  - Somnolence [Not Recovered/Not Resolved]
  - Dyspepsia [Unknown]
  - Eyelid ptosis [Recovering/Resolving]
  - Ocular discomfort [Not Recovered/Not Resolved]
  - Nausea [Unknown]
  - Headache [Not Recovered/Not Resolved]
  - Dry eye [Unknown]

NARRATIVE: CASE EVENT DATE: 20230101
